FAERS Safety Report 6619182-6 (Version None)
Quarter: 2010Q1

REPORT INFORMATION
  Report Type: 
  Country: None (occurrence: None)
  Receive Date: 20100308
  Receipt Date: 20100226
  Transmission Date: 20100710
  Serious: Yes (Congenital Anomaly)
  Sender: FDA-Public Use
  Company Number: JP-ROCHE-684152

PATIENT
  Sex: Female
  Weight: 55 kg

DRUGS (3)
  1. TAMIFLU [Suspect]
     Indication: INFLUENZA
     Route: 048
     Dates: start: 20091107, end: 20091111
  2. MAO-TO [Concomitant]
     Route: 048
     Dates: start: 20091107, end: 20091109
  3. MEDICON [Concomitant]
     Route: 048
     Dates: start: 20091109, end: 20091113

REACTIONS (2)
  - DRUG EXPOSURE DURING PREGNANCY [None]
  - INTRA-UTERINE DEATH [None]
